FAERS Safety Report 17260933 (Version 1)
Quarter: 2020Q1

REPORT INFORMATION
  Report Type: Spontaneous
  Country: US (occurrence: US)
  Receive Date: 20200113
  Receipt Date: 20200113
  Transmission Date: 20200409
  Serious: Yes (Death, Other)
  Sender: FDA-Public Use
  Company Number: US-APOTEX-2020AP006271

PATIENT

DRUGS (4)
  1. SALINE                             /00075401/ [Concomitant]
     Active Substance: SODIUM CHLORIDE
     Dosage: UNK (DAY 2)
     Route: 041
  2. MELPHALAN. [Suspect]
     Active Substance: MELPHALAN
     Indication: PLASMA CELL MYELOMA
     Dosage: DAY 1: HIGH DOSE AS A 30 MINUTES INFUSION
     Route: 041
  3. MELPHALAN. [Suspect]
     Active Substance: MELPHALAN
     Dosage: DAY 2: HIGH DOSE AS A 30 MINUTES INFUSION
     Route: 041
  4. SALINE                             /00075401/ [Concomitant]
     Active Substance: SODIUM CHLORIDE
     Indication: PRODUCT USED FOR UNKNOWN INDICATION
     Dosage: UNK (DAY 1)
     Route: 041

REACTIONS (2)
  - Sepsis [Fatal]
  - Therapeutic product effect variable [Unknown]
